FAERS Safety Report 4521813-1 (Version None)
Quarter: 2004Q4

REPORT INFORMATION
  Report Type: 
  Country: None (occurrence: None)
  Receive Date: 20041209
  Receipt Date: 20040319
  Transmission Date: 20050328
  Serious: Yes (Life-Threatening, Hospitalization)
  Sender: FDA-Public Use
  Company Number: 200410610DE

PATIENT
  Age: 58 Year
  Sex: Male

DRUGS (1)
  1. KETEK [Suspect]
     Indication: UPPER RESPIRATORY TRACT INFECTION
     Route: 048
     Dates: start: 20031125, end: 20031101

REACTIONS (10)
  - ATELECTASIS [None]
  - BUNDLE BRANCH BLOCK RIGHT [None]
  - C-REACTIVE PROTEIN INCREASED [None]
  - CARDIAC ARREST [None]
  - DIASTOLIC DYSFUNCTION [None]
  - PLATELET COUNT DECREASED [None]
  - SUPRAVENTRICULAR EXTRASYSTOLES [None]
  - SYNCOPE [None]
  - VENTRICULAR EXTRASYSTOLES [None]
  - VIRAL INFECTION [None]
